FAERS Safety Report 16969847 (Version 2)
Quarter: 2019Q4

REPORT INFORMATION
  Report Type: Spontaneous
  Country: US (occurrence: US)
  Receive Date: 20191029
  Receipt Date: 20191119
  Transmission Date: 20200122
  Serious: Yes (Other)
  Sender: FDA-Public Use
  Company Number: US-FRESENIUS KABI-FK201911746

PATIENT
  Age: 9 Year
  Sex: Female
  Weight: 36.6 kg

DRUGS (14)
  1. VINCRISTINE [Concomitant]
     Active Substance: VINCRISTINE
     Dosage: 1.8 MG (IN NORMAL SALINE) AT 0930
     Dates: start: 20190906, end: 20190906
  2. PROPOFOL. [Concomitant]
     Active Substance: PROPOFOL
     Indication: PRODUCT USED FOR UNKNOWN INDICATION
     Dosage: 310 MG INFUSED FROM 1039 TO 1050
     Route: 065
     Dates: start: 20190809, end: 20190809
  3. ONDANSETRON HYDROCHLORIDE. [Concomitant]
     Active Substance: ONDANSETRON HYDROCHLORIDE
     Indication: PRODUCT USED FOR UNKNOWN INDICATION
     Dosage: 4 MG AT 1104
     Dates: start: 20190809, end: 20190809
  4. VINCRISTINE [Concomitant]
     Active Substance: VINCRISTINE
     Indication: PRODUCT USED FOR UNKNOWN INDICATION
     Dosage: 1.8 MG (IN NORMAL SALINE) AT 1221
     Dates: start: 20190809, end: 20190809
  5. DIPRIVAN [Suspect]
     Active Substance: PROPOFOL
     Route: 042
     Dates: start: 20191030, end: 20191030
  6. ONDANSETRON HYDROCHLORIDE. [Concomitant]
     Active Substance: ONDANSETRON HYDROCHLORIDE
     Dosage: 4 MG AT 0924
     Dates: start: 20190906, end: 20190906
  7. DIPRIVAN [Suspect]
     Active Substance: PROPOFOL
     Indication: SEDATIVE THERAPY
     Route: 042
     Dates: start: 20190906, end: 20190906
  8. PROPOFOL. [Concomitant]
     Active Substance: PROPOFOL
     Dosage: 175 MG INFUSED FROM 1015 TO 1024
     Route: 065
     Dates: start: 20190906, end: 20190906
  9. PENTAMIDINE ISETHIONATE. [Concomitant]
     Active Substance: PENTAMIDINE ISETHIONATE
     Indication: PRODUCT USED FOR UNKNOWN INDICATION
     Dosage: 157 MG (IN DEXTROSE 5 PERCENT) INFUSED FROM 1108-1220
     Route: 065
     Dates: start: 20190809, end: 20190809
  10. KETAMINE [Concomitant]
     Active Substance: KETAMINE
     Indication: PRODUCT USED FOR UNKNOWN INDICATION
     Dosage: 20 MG AT 1024
     Route: 042
     Dates: start: 20190906, end: 20190906
  11. METHOTREXATE. [Concomitant]
     Active Substance: METHOTREXATE
     Dosage: 12 MG AT 1023
     Route: 037
     Dates: start: 20190906, end: 20190906
  12. PENTAMIDINE ISETHIONATE. [Concomitant]
     Active Substance: PENTAMIDINE ISETHIONATE
     Dosage: 157 MG (IN DEXTROSE 5 PERCENT) INFUSED FROM 0938 TO 1002
     Route: 065
     Dates: start: 20190906, end: 20190906
  13. DIPRIVAN [Suspect]
     Active Substance: PROPOFOL
     Indication: SEDATIVE THERAPY
     Route: 042
     Dates: start: 20190809, end: 20190809
  14. METHOTREXATE. [Concomitant]
     Active Substance: METHOTREXATE
     Indication: PRODUCT USED FOR UNKNOWN INDICATION
     Dosage: 12 MG AT 1049
     Route: 037
     Dates: start: 20190809, end: 20190809

REACTIONS (3)
  - Muscle twitching [Recovered/Resolved]
  - Muscle twitching [Recovered/Resolved]
  - Muscle twitching [Recovered/Resolved]

NARRATIVE: CASE EVENT DATE: 20190809
